FAERS Safety Report 21899769 (Version 1)
Quarter: 2023Q1

REPORT INFORMATION
  Report Type: Spontaneous
  Country: US (occurrence: US)
  Receive Date: 20230123
  Receipt Date: 20230123
  Transmission Date: 20230418
  Serious: No
  Sender: FDA-Public Use
  Company Number: US-NOVOPROD-956089

PATIENT
  Sex: Female

DRUGS (5)
  1. OZEMPIC [Suspect]
     Active Substance: SEMAGLUTIDE
     Indication: Product used for unknown indication
     Dosage: UNK
  2. JARDIANCE [Suspect]
     Active Substance: EMPAGLIFLOZIN
     Dosage: 25 MG DAILY
  3. JARDIANCE [Suspect]
     Active Substance: EMPAGLIFLOZIN
     Indication: Product used for unknown indication
     Dosage: 25 MG, QW
  4. GLUCARPIDASE [Suspect]
     Active Substance: GLUCARPIDASE
     Dosage: UNKNOWN
  5. GLUCARPIDASE [Suspect]
     Active Substance: GLUCARPIDASE
     Indication: Product used for unknown indication
     Dosage: UNK

REACTIONS (2)
  - Renal pain [Unknown]
  - Off label use [Unknown]
